FAERS Safety Report 17242070 (Version 2)
Quarter: 2020Q1

REPORT INFORMATION
  Report Type: Spontaneous
  Country: US (occurrence: US)
  Receive Date: 20200107
  Receipt Date: 20200107
  Transmission Date: 20200409
  Serious: Yes (Life-Threatening)
  Sender: FDA-Public Use
  Company Number: NVSC2020US000989

PATIENT
  Age: 69 Year
  Sex: Female

DRUGS (7)
  1. TACROLIMUS. [Suspect]
     Active Substance: TACROLIMUS
     Indication: RENAL TRANSPLANT
     Dosage: UNK
     Route: 065
  2. PREDNISONE. [Suspect]
     Active Substance: PREDNISONE
     Indication: RENAL TRANSPLANT
     Dosage: UNK
     Route: 065
  3. MYCOPHENOLATE MOFETIL. [Suspect]
     Active Substance: MYCOPHENOLATE MOFETIL
     Indication: IMMUNOSUPPRESSANT DRUG THERAPY
  4. PREDNISONE. [Suspect]
     Active Substance: PREDNISONE
     Indication: IMMUNOSUPPRESSANT DRUG THERAPY
  5. MYCOPHENOLATE MOFETIL. [Suspect]
     Active Substance: MYCOPHENOLATE MOFETIL
     Indication: RENAL TRANSPLANT
     Dosage: UNK
     Route: 065
  6. TACROLIMUS. [Suspect]
     Active Substance: TACROLIMUS
     Indication: IMMUNOSUPPRESSANT DRUG THERAPY
  7. CEFTRIAXONE. [Concomitant]
     Active Substance: CEFTRIAXONE
     Indication: PYELONEPHRITIS
     Dosage: UNK
     Route: 065

REACTIONS (6)
  - Confusional state [Not Recovered/Not Resolved]
  - Somnolence [Not Recovered/Not Resolved]
  - West Nile viral infection [Not Recovered/Not Resolved]
  - Product use in unapproved indication [Unknown]
  - Mental status changes [Not Recovered/Not Resolved]
  - Coma [Not Recovered/Not Resolved]
